FAERS Safety Report 4827643-5 (Version None)
Quarter: 2005Q4

REPORT INFORMATION
  Report Type: 
  Country: None (occurrence: None)
  Receive Date: 20051110
  Receipt Date: 20051025
  Transmission Date: 20060501
  Serious: Yes (Congenital Anomaly)
  Sender: FDA-Public Use
  Company Number: DSA_27341_2005

PATIENT

DRUGS (1)
  1. ENALAPRIL [Suspect]
     Dosage: DF TRAN-P
     Route: 064

REACTIONS (6)
  - ANGIOTENSIN CONVERTING ENZYME INHIBITOR FOETOPATHY [None]
  - DRUG EXPOSURE DURING PREGNANCY [None]
  - KIDNEY SMALL [None]
  - POLYCYTHAEMIA [None]
  - RENAL FAILURE [None]
  - SMALL FOR DATES BABY [None]
